FAERS Safety Report 19649002 (Version 1)
Quarter: 2021Q3

REPORT INFORMATION
  Report Type: Spontaneous
  Country: US (occurrence: US)
  Receive Date: 20210802
  Receipt Date: 20210802
  Transmission Date: 20211014
  Serious: Yes (Other)
  Sender: FDA-Public Use
  Company Number: US-PFIZER INC-2019489880

PATIENT
  Age: 51 Year
  Sex: Male

DRUGS (3)
  1. LYRICA [Suspect]
     Active Substance: PREGABALIN
     Dosage: 400 MG, 1X/DAY (2 CAPSULES BY MOUTH EVERY EVENING)
     Route: 048
  2. LYRICA [Suspect]
     Active Substance: PREGABALIN
     Indication: FIBROMYALGIA
     Dosage: 400 MG, 1X/DAY(2 TABS PO (ORAL) EVERY EVENING)
     Route: 048
  3. LYRICA [Suspect]
     Active Substance: PREGABALIN
     Dosage: 400 MG, 1X/DAY (TAKE 2 CAPSULES BY MOUTH EVERY EVENING)
     Route: 048

REACTIONS (4)
  - Arthralgia [Unknown]
  - Joint range of motion decreased [Unknown]
  - Back pain [Unknown]
  - Tenderness [Unknown]
